FAERS Safety Report 8432381-6 (Version None)
Quarter: 2012Q2

REPORT INFORMATION
  Report Type: 
  Country: None (occurrence: None)
  Receive Date: 20120607
  Receipt Date: 20091126
  Transmission Date: 20120825
  Serious: No
  Sender: FDA-Public Use
  Company Number: 2009EU004538

PATIENT
  Age: 20 Year
  Sex: Female

DRUGS (2)
  1. TACROLIMUS [Suspect]
     Indication: RENAL TRANSPLANT
     Dosage: 2.5 MG, BID 4 MG, BID
  2. AZATHIOPRINE [Concomitant]

REACTIONS (11)
  - PREGNANCY [None]
  - COMPLICATIONS OF TRANSPLANTED KIDNEY [None]
  - HAEMOGLOBIN DECREASED [None]
  - HYDRONEPHROSIS [None]
  - CAESAREAN SECTION [None]
  - MATERNAL EXPOSURE DURING PREGNANCY [None]
  - BLOOD CREATININE INCREASED [None]
  - IMMUNOSUPPRESSANT DRUG LEVEL DECREASED [None]
  - PREMATURE DELIVERY [None]
  - KIDNEY TRANSPLANT REJECTION [None]
  - HAEMORRHAGE IN PREGNANCY [None]
